FAERS Safety Report 15378384 (Version 1)
Quarter: 2018Q3

REPORT INFORMATION
  Report Type: Spontaneous
  Country: ES (occurrence: ES)
  Receive Date: 20180913
  Receipt Date: 20180913
  Transmission Date: 20181010
  Serious: Yes (Other)
  Sender: FDA-Public Use
  Company Number: ES-PFIZER INC-2018361703

PATIENT
  Age: 59 Year
  Sex: Male

DRUGS (2)
  1. PIROXICAM. [Suspect]
     Active Substance: PIROXICAM
     Dosage: UNK
     Route: 065
  2. EBROTIDINE [Suspect]
     Active Substance: EBROTIDINE
     Dosage: UNK
     Route: 065

REACTIONS (3)
  - Drug-induced liver injury [Unknown]
  - Idiosyncratic drug reaction [Unknown]
  - Hepatic necrosis [Unknown]
